APPROVED DRUG PRODUCT: LOPERAMIDE HYDROCHLORIDE
Active Ingredient: LOPERAMIDE HYDROCHLORIDE
Strength: 2MG
Dosage Form/Route: TABLET;ORAL
Application: A206548 | Product #001
Applicant: AUROBINDO PHARMA LTD
Approved: Dec 15, 2015 | RLD: No | RS: No | Type: OTC